FAERS Safety Report 12919274 (Version 2)
Quarter: 2016Q4

REPORT INFORMATION
  Report Type: Other
  Country: CA (occurrence: CA)
  Receive Date: 20161108
  Receipt Date: 20161118
  Transmission Date: 20170207
  Serious: Yes (Hospitalization, Other)
  Sender: FDA-Public Use
  Company Number: CA-SHIRE-CA201612407

PATIENT
  Age: 59 Year
  Sex: Male
  Weight: 69.52 kg

DRUGS (8)
  1. RATIO CODEINE [Concomitant]
     Indication: PRODUCT USED FOR UNKNOWN INDICATION
     Dosage: 1 DF, 4X/DAY:QID
     Route: 048
     Dates: start: 20160510
  2. RATIO CODEINE [Concomitant]
     Dosage: 2 DF, 4X/DAY:QID WITH MEALS AND AT BEDTIME
     Route: 065
  3. MIRTAZAPINE. [Concomitant]
     Active Substance: MIRTAZAPINE
     Indication: PRODUCT USED FOR UNKNOWN INDICATION
     Dosage: 15 MG, QHS BEDTIME
     Route: 065
  4. TPN [Concomitant]
     Active Substance: AMINO ACIDS\DEXTROSE\ELECTROLYTES NOS\SOYBEAN OIL
     Indication: PRODUCT USED FOR UNKNOWN INDICATION
     Dosage: 2500 MG, 6/7 OVER 8 HOURS
     Route: 065
  5. 0.45% N/S [Concomitant]
     Indication: PRODUCT USED FOR UNKNOWN INDICATION
     Dosage: 1 L, TWICE/WEEK
     Route: 042
  6. REVESTIVE [Suspect]
     Active Substance: TEDUGLUTIDE
     Indication: SHORT-BOWEL SYNDROME
     Dosage: 3.35 MG, 1X/DAY:QD
     Route: 058
     Dates: start: 20160309
  7. URSODIOL. [Concomitant]
     Active Substance: URSODIOL
     Indication: PRODUCT USED FOR UNKNOWN INDICATION
     Dosage: 250 MG, 2X/DAY:BID
     Route: 065
  8. TPN [Concomitant]
     Active Substance: AMINO ACIDS\DEXTROSE\ELECTROLYTES NOS\SOYBEAN OIL
     Dosage: 2500 MG, 6/7 OVER 8 HOURS
     Route: 065

REACTIONS (22)
  - Social avoidant behaviour [Unknown]
  - Hypotension [Unknown]
  - Abdominal pain [Recovered/Resolved]
  - Device related infection [Recovered/Resolved]
  - Haemoglobin decreased [Unknown]
  - Weight increased [Unknown]
  - Candida sepsis [Recovered/Resolved]
  - Pyrexia [Unknown]
  - Sleep disorder [Unknown]
  - Abnormal behaviour [Recovered/Resolved]
  - Weight decreased [Recovered/Resolved]
  - Asthenia [Unknown]
  - Neuropsychiatric symptoms [Unknown]
  - Personality change [Unknown]
  - Presyncope [Recovering/Resolving]
  - Decreased appetite [Recovered/Resolved]
  - Memory impairment [Unknown]
  - Dehydration [Unknown]
  - Neglect of personal appearance [Unknown]
  - Abdominal distension [Recovered/Resolved]
  - Depression [Recovered/Resolved]
  - Restlessness [Unknown]

NARRATIVE: CASE EVENT DATE: 201608
